FAERS Safety Report 5136116-4 (Version None)
Quarter: 2006Q4

REPORT INFORMATION
  Report Type: 
  Country: None (occurrence: None)
  Receive Date: 20061027
  Receipt Date: 20060913
  Transmission Date: 20070319
  Serious: Yes (Hospitalization)
  Sender: FDA-Public Use
  Company Number: SEWYE918914SEP06

PATIENT

DRUGS (4)
  1. ENBREL [Suspect]
     Indication: RHEUMATOID ARTHRITIS
     Dosage: 50 MG PER WEEK
     Route: 058
     Dates: start: 20040101
  2. LEVAXIN [Concomitant]
  3. ARDINEX [Concomitant]
  4. PREDNISOLON [Concomitant]

REACTIONS (1)
  - UROSEPSIS [None]
